FAERS Safety Report 14450129 (Version 1)
Quarter: 2018Q1

REPORT INFORMATION
  Report Type: Spontaneous
  Country: CA (occurrence: CA)
  Receive Date: 20180129
  Receipt Date: 20180129
  Transmission Date: 20180509
  Serious: Yes (Hospitalization, Other)
  Sender: FDA-Public Use
  Company Number: CA-BRISTOL-MYERS SQUIBB COMPANY-BMS-2018-006564

PATIENT
  Age: 78 Year
  Sex: Male

DRUGS (4)
  1. ASA [Suspect]
     Active Substance: ASPIRIN
     Indication: ENDARTERECTOMY
     Route: 065
  2. ASA [Suspect]
     Active Substance: ASPIRIN
     Indication: ATRIAL FIBRILLATION
     Dosage: 81 MG, QD
     Route: 048
  3. ELIQUIS [Suspect]
     Active Substance: APIXABAN
     Indication: CEREBROVASCULAR ACCIDENT PROPHYLAXIS
     Dosage: 5 MG, BID
     Route: 048
  4. ELIQUIS [Suspect]
     Active Substance: APIXABAN
     Indication: ENDARTERECTOMY
     Route: 065

REACTIONS (10)
  - Blood urea increased [Unknown]
  - Faeces discoloured [Unknown]
  - Rectal haemorrhage [Unknown]
  - Fatigue [Unknown]
  - Haematochezia [Unknown]
  - Haematocrit decreased [Unknown]
  - Blood creatinine increased [Unknown]
  - Diarrhoea [Unknown]
  - Haemoglobin decreased [Unknown]
  - Thrombosis [Unknown]
